FAERS Safety Report 5122563-3 (Version None)
Quarter: 2006Q4

REPORT INFORMATION
  Report Type: 
  Country: None (occurrence: None)
  Receive Date: 20061004
  Receipt Date: 20060921
  Transmission Date: 20070319
  Serious: Yes (Hospitalization, Other)
  Sender: FDA-Public Use
  Company Number: HQWYE016321SEP06

PATIENT
  Age: 79 Year
  Sex: Male

DRUGS (6)
  1. CORDARONE [Suspect]
     Indication: ACUTE CORONARY SYNDROME
     Dosage: SEE IMAGE
     Route: 040
     Dates: start: 20060712, end: 20060712
  2. CORDARONE [Suspect]
     Indication: ACUTE CORONARY SYNDROME
     Dosage: SEE IMAGE
     Route: 040
     Dates: start: 20060712, end: 20060712
  3. CORDARONE [Suspect]
     Indication: ACUTE CORONARY SYNDROME
     Dosage: SEE IMAGE
     Route: 040
     Dates: start: 20060712, end: 20060715
  4. MORPHINE SULFATE [Concomitant]
  5. NOVALGIA (METAMIZOLE SODIUM) [Concomitant]
  6. INSULIN (INSULIN) [Concomitant]

REACTIONS (4)
  - BODY TEMPERATURE INCREASED [None]
  - TREMOR [None]
  - WRONG DRUG ADMINISTERED [None]
  - WRONG TECHNIQUE IN DRUG USAGE PROCESS [None]
